FAERS Safety Report 7296891-X (Version None)
Quarter: 2011Q1

REPORT INFORMATION
  Report Type: 
  Country: None (occurrence: None)
  Receive Date: 20110204
  Receipt Date: 20110119
  Transmission Date: 20110831
  Serious: Yes (Hospitalization)
  Sender: FDA-Public Use
  Company Number: JP-2011-10120

PATIENT
  Age: 92 Year
  Sex: Female

DRUGS (11)
  1. ADALAT CR (NIFEDIPINE) TABLET [Concomitant]
  2. SAMSCA [Suspect]
     Indication: CARDIAC FAILURE CONGESTIVE
     Dosage: 15 MG MILLIGRAM(S), QD, ORAL, 7.5 MG MILLIGRAM(S), QD, ORAL
     Route: 048
     Dates: start: 20110117
  3. SAMSCA [Suspect]
     Indication: CARDIAC FAILURE CONGESTIVE
     Dosage: 15 MG MILLIGRAM(S), QD, ORAL, 7.5 MG MILLIGRAM(S), QD, ORAL
     Route: 048
     Dates: start: 20110110, end: 20110112
  4. DOBUTAMINE (DOBUTAMINE HYDROCHLORIDE) INJECTION [Concomitant]
  5. SOLDACTONE (POTASSIUM CANRENOATE) INJECTION [Concomitant]
  6. HANP (CARPERITIDE) INJECTION [Concomitant]
  7. LASIX [Concomitant]
  8. ALDACTONE [Concomitant]
  9. WARFARIN (WARFARIN) TABLET [Concomitant]
  10. FLUITRAN (TRICHLORMETHIAZIDE) TABLET [Concomitant]
  11. BLOPRESS (CANDESARTAN CILEXETIL) TABLET [Concomitant]

REACTIONS (3)
  - WHEEZING [None]
  - HYPERNATRAEMIA [None]
  - UNEVALUABLE EVENT [None]
